FAERS Safety Report 8327900-4 (Version None)
Quarter: 2012Q2

REPORT INFORMATION
  Report Type: 
  Country: None (occurrence: None)
  Receive Date: 20120502
  Receipt Date: 20120424
  Transmission Date: 20120825
  Serious: Yes (Hospitalization, Disabling)
  Sender: FDA-Public Use
  Company Number: US-CELGENEUS-163-20785-12012679

PATIENT
  Sex: Female

DRUGS (11)
  1. SIMVASTATIN [Concomitant]
     Dosage: 10 MILLIGRAM
     Route: 065
  2. TRAMADOL HCL [Concomitant]
     Dosage: 50 MILLIGRAM
     Route: 065
  3. METOPROLOL TARTRATE [Concomitant]
     Dosage: 25
     Route: 065
  4. CLOBETASOL PROPIONATE [Concomitant]
     Indication: RASH
     Route: 067
  5. LYRICA [Concomitant]
     Dosage: 25 MILLIGRAM
     Route: 065
  6. PLAQUENIL [Concomitant]
     Indication: SYSTEMIC LUPUS ERYTHEMATOSUS
     Dosage: 200 MILLIGRAM
     Route: 065
  7. THALOMID [Suspect]
     Dosage: 50 MILLIGRAM
     Route: 048
     Dates: start: 20060601, end: 20111222
  8. THALOMID [Suspect]
     Indication: SYSTEMIC LUPUS ERYTHEMATOSUS
     Dosage: 100 MILLIGRAM
     Route: 048
     Dates: start: 20010901
  9. NASONEX [Concomitant]
     Route: 065
  10. THALOMID [Suspect]
     Dosage: 50 MILLIGRAM
     Route: 048
     Dates: start: 20020101, end: 20060601
  11. DILTIAZEM [Concomitant]
     Indication: ATRIAL FIBRILLATION
     Dosage: 300 MILLIGRAM
     Route: 065

REACTIONS (3)
  - CARDIAC FAILURE CONGESTIVE [None]
  - CHRONIC OBSTRUCTIVE PULMONARY DISEASE [None]
  - ACUTE RESPIRATORY FAILURE [None]
